FAERS Safety Report 8968729 (Version 4)
Quarter: 2013Q2

REPORT INFORMATION
  Report Type: Spontaneous
  Country: US (occurrence: US)
  Receive Date: 20121218
  Receipt Date: 20130416
  Transmission Date: 20140414
  Serious: No
  Sender: FDA-Public Use
  Company Number: US-BIOGENIDEC-2012BI059936

PATIENT
  Age: 52 Year
  Sex: Male

DRUGS (1)
  1. AVONEX [Suspect]
     Indication: MULTIPLE SCLEROSIS
     Route: 030
     Dates: start: 20121205

REACTIONS (16)
  - Hypoaesthesia [Recovered/Resolved with Sequelae]
  - Mobility decreased [Unknown]
  - Heat exhaustion [Unknown]
  - Prostatomegaly [Unknown]
  - Fall [Recovered/Resolved]
  - Abdominal injury [Unknown]
  - Contusion [Recovered/Resolved]
  - Loss of control of legs [Recovered/Resolved]
  - Migraine [Not Recovered/Not Resolved]
  - Syncope [Recovered/Resolved with Sequelae]
  - Fatigue [Not Recovered/Not Resolved]
  - Paraesthesia [Recovered/Resolved with Sequelae]
  - Insomnia [Not Recovered/Not Resolved]
  - Arthralgia [Unknown]
  - Headache [Recovered/Resolved]
  - Chills [Recovered/Resolved]
